FAERS Safety Report 22159303 (Version 1)
Quarter: 2023Q1

REPORT INFORMATION
  Report Type: Spontaneous
  Country: US (occurrence: US)
  Receive Date: 20230331
  Receipt Date: 20230331
  Transmission Date: 20230418
  Serious: Yes (Other)
  Sender: FDA-Public Use
  Company Number: US-TEVA-2023-US-2871565

PATIENT

DRUGS (12)
  1. HYDROXYCHLOROQUINE [Suspect]
     Active Substance: HYDROXYCHLOROQUINE
     Indication: Neurodermatitis
     Route: 065
     Dates: start: 20230105
  2. HYDROXYCHLOROQUINE [Suspect]
     Active Substance: HYDROXYCHLOROQUINE
     Route: 065
     Dates: start: 20220906, end: 20221204
  3. NALTREXONE [Concomitant]
     Active Substance: NALTREXONE
     Indication: Pain
     Dosage: GRADUALLY TO 4.5 MG,
     Dates: start: 20220922, end: 20221101
  4. CANNABIDIOL\HERBALS [Concomitant]
     Active Substance: CANNABIDIOL\HERBALS
     Indication: Pain
     Dates: start: 20220906, end: 20221205
  5. PRAVASTATIN [Concomitant]
     Active Substance: PRAVASTATIN
     Indication: Product used for unknown indication
     Dates: start: 20221022, end: 20221108
  6. ROSUVASTATIN [Concomitant]
     Active Substance: ROSUVASTATIN
     Indication: Product used for unknown indication
     Dosage: MON AND FRI
     Dates: start: 20230106, end: 20230128
  7. DOXYCYCLINE [Concomitant]
     Active Substance: DOXYCYCLINE
     Indication: Nail infection
     Dates: start: 20221231, end: 20230110
  8. DEXAMETHASONE [Concomitant]
     Active Substance: DEXAMETHASONE
     Indication: Product used for unknown indication
     Dates: start: 20230220
  9. CARVEDILOL [Concomitant]
     Active Substance: CARVEDILOL
     Indication: Product used for unknown indication
     Dates: start: 20220702, end: 20221219
  10. CARVEDILOL [Concomitant]
     Active Substance: CARVEDILOL
     Dates: start: 20221220
  11. LIOTHYRONINE [Concomitant]
     Active Substance: LIOTHYRONINE
     Indication: Product used for unknown indication
     Dates: start: 19900101
  12. Bivalent Pfizer covid vaccine [Concomitant]
     Indication: Product used for unknown indication
     Dates: start: 20221122

REACTIONS (4)
  - Hypothyroidism [Unknown]
  - Hypertension [Unknown]
  - Arthritis [Unknown]
  - Rash pruritic [Unknown]
